FAERS Safety Report 20938380 (Version 4)
Quarter: 2022Q4

REPORT INFORMATION
  Report Type: Report from Study
  Country: CA (occurrence: CA)
  Receive Date: 20220609
  Receipt Date: 20221014
  Transmission Date: 20230113
  Serious: Yes (Hospitalization)
  Sender: FDA-Public Use
  Company Number: CA-NOVARTISPH-NVSC2021CA050153

PATIENT
  Age: 39 Year
  Sex: Female

DRUGS (1)
  1. ERELZI [Suspect]
     Active Substance: ETANERCEPT-SZZS
     Indication: Juvenile idiopathic arthritis
     Dosage: 50 MG, QW
     Route: 058
     Dates: start: 20210227

REACTIONS (12)
  - Gastrointestinal tract irritation [Unknown]
  - Food allergy [Unknown]
  - Vomiting [Unknown]
  - Fatigue [Recovered/Resolved]
  - Pain [Unknown]
  - Illness [Unknown]
  - Nasopharyngitis [Unknown]
  - Stress [Unknown]
  - Gastritis [Unknown]
  - Hand-foot-and-mouth disease [Unknown]
  - Nausea [Unknown]
  - Diarrhoea [Recovered/Resolved]

NARRATIVE: CASE EVENT DATE: 20210227
